FAERS Safety Report 10244008 (Version 1)
Quarter: 2014Q1

REPORT INFORMATION
  Report Type: Spontaneous
  Country: US (occurrence: None)
  Receive Date: 20140306
  Receipt Date: 20140306
  Transmission Date: 20141002
  Serious: Yes (Other)
  Sender: FDA-Public Use
  Company Number: 163-21880-13114453

PATIENT
  Age: 59 Year
  Sex: Male
  Weight: 108.9 kg

DRUGS (8)
  1. REVLIMIB (LENALIDOMIDE) (25 MILLIGRAM, CAPSULES) [Suspect]
     Indication: PLASMA CELL MYELOMA
     Route: 048
     Dates: start: 200905
  2. COUMADIN (WARFARIN SODIUM) [Concomitant]
  3. ZYRTEC (CETIRIZINE HYDROCHLORIDE) [Concomitant]
  4. ASPIRIN DR [Concomitant]
  5. FOLIC ACID (FOLIC ACID) [Concomitant]
  6. SIMVASTATIN (SIMVASTATIN) [Concomitant]
  7. METOPROLOL TARTRATE (METOPROLOL TARTRATE) [Concomitant]
  8. ACYCLOVIR (ACICLOVIR) (ACICLOVIR) [Concomitant]

REACTIONS (1)
  - Thrombosis [None]
